FAERS Safety Report 7251282-2 (Version None)
Quarter: 2011Q1

REPORT INFORMATION
  Report Type: 
  Country: None (occurrence: None)
  Receive Date: 20110128
  Receipt Date: 20110119
  Transmission Date: 20110831
  Serious: Yes (Other)
  Sender: FDA-Public Use
  Company Number: US-ALLERGAN-1100815US

PATIENT

DRUGS (3)
  1. COMBIGAN[R] [Suspect]
     Indication: INTRAOCULAR PRESSURE INCREASED
  2. AZOPT [Suspect]
     Indication: INTRAOCULAR PRESSURE INCREASED
  3. XALATAN [Suspect]
     Indication: INTRAOCULAR PRESSURE INCREASED

REACTIONS (1)
  - OPTIC NERVE INJURY [None]
